FAERS Safety Report 21726476 (Version 1)
Quarter: 2022Q4

REPORT INFORMATION
  Report Type: Report from Study
  Country: US (occurrence: US)
  Receive Date: 20221214
  Receipt Date: 20221214
  Transmission Date: 20230113
  Serious: No
  Sender: FDA-Public Use
  Company Number: US-ABBVIE-4233123

PATIENT
  Sex: Female

DRUGS (2)
  1. HUMIRA [Suspect]
     Active Substance: ADALIMUMAB
     Indication: Hidradenitis
     Route: 058
  2. HUMIRA [Suspect]
     Active Substance: ADALIMUMAB
     Route: 058

REACTIONS (7)
  - Injection site haemorrhage [Unknown]
  - Injection site pruritus [Unknown]
  - Device issue [Unknown]
  - Injection site papule [Unknown]
  - Incorrect dose administered [Unknown]
  - Injection site papule [Unknown]
  - Injection site pruritus [Unknown]
